FAERS Safety Report 8024411-0 (Version None)
Quarter: 2012Q1

REPORT INFORMATION
  Report Type: 
  Country: None (occurrence: None)
  Receive Date: 20120105
  Receipt Date: 20120102
  Transmission Date: 20120608
  Serious: Yes (Hospitalization)
  Sender: FDA-Public Use
  Company Number: PHHY2012DE000657

PATIENT
  Sex: Male
  Weight: 98 kg

DRUGS (9)
  1. EPROSARTAN [Concomitant]
     Dosage: 300 MG, DAILY (0.5-0-0)
  2. VALPROATE SODIUM [Concomitant]
     Dosage: 2000 MG, DAILY (1-0-1)
  3. TESTOSTERONE [Concomitant]
     Dosage: 50 MG, DAILY(1-0-0)
  4. OMEPRAZOLE [Concomitant]
     Dosage: 20 MG, DAILY(1-0-0)
  5. LEVOTHYROXINE SODIUM [Concomitant]
     Dosage: 50 UG, DAILY (1-0-0)
  6. SANDOSTATIN LAR [Suspect]
     Indication: ACROMEGALY
  7. LAMOTRIGINE [Concomitant]
     Dosage: 200 MG, DAILY (1-1-2)
  8. BROMOCRIPTINE MESYLATE [Concomitant]
     Dosage: 20MG, DAILY (1-0-1)
  9. OBSIDAN [Concomitant]
     Dosage: 75 MG, DAILY (1-1-1)

REACTIONS (1)
  - EPILEPSY [None]
